FAERS Safety Report 14830981 (Version 1)
Quarter: 2018Q2

REPORT INFORMATION
  Report Type: Report from Study
  Country: FR (occurrence: FR)
  Receive Date: 20180430
  Receipt Date: 20180430
  Transmission Date: 20180711
  Serious: Yes (Hospitalization, Other)
  Sender: FDA-Public Use
  Company Number: FR-SHIRE-FR201816315

PATIENT

DRUGS (34)
  1. NALBUPHINE [Concomitant]
     Active Substance: NALBUPHINE
     Indication: ANALGESIC THERAPY
  2. TOPALGIC [Concomitant]
     Indication: PAIN
  3. DEBRIDAT [Concomitant]
     Active Substance: TRIMEBUTINE MALEATE
     Indication: ABDOMINAL PAIN
  4. AMIKLIN [Concomitant]
     Active Substance: AMIKACIN SULFATE
     Indication: ANTI-INFECTIVE THERAPY
  5. ZOPHREN [Concomitant]
     Active Substance: ONDANSETRON
     Indication: VOMITING
  6. UVEDOSE [Concomitant]
     Active Substance: CHOLECALCIFEROL
     Indication: VITAMIN SUPPLEMENTATION
  7. HYDROCORTISONE. [Suspect]
     Active Substance: HYDROCORTISONE
     Indication: ACUTE LYMPHOCYTIC LEUKAEMIA
     Dosage: 15 MG, UNK
     Route: 037
     Dates: start: 20180330, end: 20180330
  8. POLARAMINE [Concomitant]
     Active Substance: DEXCHLORPHENIRAMINE MALEATE
     Indication: ANTIALLERGIC THERAPY
  9. ZYLORIC [Concomitant]
     Active Substance: ALLOPURINOL
     Indication: PRODUCT USED FOR UNKNOWN INDICATION
  10. RIVOTRIL [Concomitant]
     Active Substance: CLONAZEPAM
     Indication: ANALGESIC THERAPY
  11. OCTAGAM IMMUNE GLOBULIN (HUMAN) [Concomitant]
     Active Substance: HUMAN IMMUNOGLOBULIN G
     Indication: ANTI-INFECTIVE THERAPY
  12. BECILAN [Concomitant]
     Active Substance: PYRIDOXINE
     Indication: VITAMIN SUPPLEMENTATION
  13. URSOLVAN [Concomitant]
     Active Substance: URSODIOL
     Indication: LIVER INJURY
  14. ADRIAMYCIN [Suspect]
     Active Substance: DOXORUBICIN HYDROCHLORIDE
     Indication: ACUTE LYMPHOCYTIC LEUKAEMIA
     Dosage: 17.6 MG, UNK
     Route: 042
     Dates: start: 20180327, end: 20180410
  15. METHOTREXATE. [Suspect]
     Active Substance: METHOTREXATE
     Indication: ACUTE LYMPHOCYTIC LEUKAEMIA
     Dosage: 12 MG, UNK
     Route: 037
     Dates: start: 20180330, end: 20180330
  16. PARACETAMOL [Concomitant]
     Active Substance: ACETAMINOPHEN
     Indication: PAIN
  17. TAZOCILLINE [Concomitant]
     Active Substance: PIPERACILLIN SODIUM\TAZOBACTAM SODIUM
     Indication: ANTI-INFECTIVE THERAPY
  18. NALBUPHINE [Concomitant]
     Active Substance: NALBUPHINE
     Indication: PAIN
  19. BACTRIM [Concomitant]
     Active Substance: SULFAMETHOXAZOLE\TRIMETHOPRIM
     Indication: ANTI-INFECTIVE THERAPY
  20. PENTACARINAT [Concomitant]
     Active Substance: PENTAMIDINE ISETHIONATE
     Indication: ANTI-INFECTIVE THERAPY
  21. ZOPHREN [Concomitant]
     Active Substance: ONDANSETRON
     Indication: NAUSEA
  22. TIORFAN [Concomitant]
     Active Substance: RACECADOTRIL
     Indication: ANTIDIARRHOEAL SUPPORTIVE CARE
  23. VANCOMYCIN [Concomitant]
     Active Substance: VANCOMYCIN
     Indication: ANTI-INFECTIVE THERAPY
  24. FORLAX [Concomitant]
     Active Substance: POLYETHYLENE GLYCOL 4000
     Indication: LAXATIVE SUPPORTIVE CARE
  25. LOXEN [Concomitant]
     Indication: BLOOD PRESSURE MEASUREMENT
  26. CALCIDOSE [Concomitant]
     Active Substance: CALCIUM CARBONATE
     Indication: ANTI-INFECTIVE THERAPY
  27. CYTARABINE. [Suspect]
     Active Substance: CYTARABINE
     Indication: ACUTE LYMPHOCYTIC LEUKAEMIA
     Dosage: 30 MG, UNK
     Route: 037
     Dates: start: 20180330, end: 20180330
  28. LOXEN [Concomitant]
     Indication: HYPERTENSION
  29. PEGASPARGASE [Suspect]
     Active Substance: PEGASPARGASE
     Indication: ACUTE LYMPHOCYTIC LEUKAEMIA
     Dosage: 1725 IU, UNK
     Route: 042
     Dates: start: 20180330, end: 20180330
  30. VINCRISTINE [Suspect]
     Active Substance: VINCRISTINE
     Indication: ACUTE LYMPHOCYTIC LEUKAEMIA
     Dosage: 1.1 MG, UNK
     Route: 042
     Dates: start: 20180327, end: 20180410
  31. DEXAMETHASONE. [Suspect]
     Active Substance: DEXAMETHASONE
     Indication: ACUTE LYMPHOCYTIC LEUKAEMIA
     Dosage: 7.0 MG, UNK
     Route: 048
     Dates: start: 20180327, end: 20180416
  32. PARACETAMOL [Concomitant]
     Active Substance: ACETAMINOPHEN
     Indication: PYREXIA
  33. NUBAIN [Concomitant]
     Active Substance: NALBUPHINE HYDROCHLORIDE
     Indication: ANALGESIC THERAPY
  34. AMBISOME [Concomitant]
     Active Substance: AMPHOTERICIN B
     Indication: ANTI-INFECTIVE THERAPY

REACTIONS (1)
  - Febrile bone marrow aplasia [Not Recovered/Not Resolved]

NARRATIVE: CASE EVENT DATE: 20180418
